FAERS Safety Report 14262217 (Version 11)
Quarter: 2019Q2

REPORT INFORMATION
  Report Type: Spontaneous
  Country: IT (occurrence: IT)
  Receive Date: 20171208
  Receipt Date: 20190409
  Transmission Date: 20190711
  Serious: Yes (Other)
  Sender: FDA-Public Use
  Company Number: IT-PFIZER INC-2017522584

PATIENT
  Age: 33 Year
  Sex: Male
  Weight: 100 kg

DRUGS (15)
  1. QUETIAPINA ACCORD [Suspect]
     Active Substance: QUETIAPINE
     Dosage: 200 MG (8 TABLETS)
     Route: 048
     Dates: start: 20171112, end: 20171112
  2. LORMETAZEPAM [Suspect]
     Active Substance: LORMETAZEPAM
     Dosage: 12 MG, TOTAL
     Dates: start: 20171112, end: 20171112
  3. LANSOPRAZOLE. [Suspect]
     Active Substance: LANSOPRAZOLE
     Dosage: 15 MG (8 TABLETS) SINGLE
     Route: 048
     Dates: start: 20171112, end: 20171112
  4. LORMETAZEPAM [Suspect]
     Active Substance: LORMETAZEPAM
     Dosage: 2 MG (6 TABLETS) TOTAL
     Route: 048
     Dates: start: 20171112, end: 20171112
  5. RISPERIDONE. [Suspect]
     Active Substance: RISPERIDONE
     Dosage: 6 MG, TOTAL
     Route: 048
     Dates: start: 20171112, end: 20171112
  6. LANSOPRAZOLE. [Suspect]
     Active Substance: LANSOPRAZOLE
     Dosage: 60 MG, TOTAL
     Route: 048
     Dates: start: 20171112, end: 20171112
  7. HALDOL [Suspect]
     Active Substance: HALOPERIDOL
     Dosage: 1 MG (4 TABLETS) TOTAL
     Route: 048
     Dates: start: 20171112, end: 20171112
  8. HALDOL [Suspect]
     Active Substance: HALOPERIDOL
     Dosage: 4 MG, TOTAL
     Route: 048
     Dates: start: 20171112, end: 20171112
  9. AKINETON [Suspect]
     Active Substance: BIPERIDEN HYDROCHLORIDE
     Dosage: 40 MG, TOTAL
     Route: 048
     Dates: start: 20171112, end: 20171112
  10. RISPERIDONE. [Suspect]
     Active Substance: RISPERIDONE
     Dosage: 2 MG (3 TABLETS) TOTAL
     Route: 048
     Dates: start: 20171112, end: 20171112
  11. ZUCLOPENTHIXOL HYDROCHLORIDE [Suspect]
     Active Substance: ZUCLOPENTHIXOL HYDROCHLORIDE
     Dosage: 20 MG, QD
     Route: 048
     Dates: start: 20171112, end: 20171112
  12. LORAZEPAM. [Suspect]
     Active Substance: LORAZEPAM
     Dosage: 2.5 MG (10 TABLETS) TOTAL
     Route: 048
     Dates: start: 20171112, end: 20171112
  13. LORAZEPAM. [Suspect]
     Active Substance: LORAZEPAM
     Dosage: 25 MG, TOTAL
     Route: 048
     Dates: start: 20171112, end: 20171112
  14. QUETIAPINA ACCORD [Suspect]
     Active Substance: QUETIAPINE
     Dosage: 1600 MG, TOTAL
     Route: 048
     Dates: start: 20171112, end: 20171112
  15. AKINETON [Suspect]
     Active Substance: BIPERIDEN HYDROCHLORIDE
     Dosage: 4 MG (10 TABLETS)
     Route: 048
     Dates: start: 20171112, end: 20171112

REACTIONS (3)
  - Intentional self-injury [Unknown]
  - Self-injurious ideation [Unknown]
  - Intentional product misuse [Unknown]

NARRATIVE: CASE EVENT DATE: 20171112
